FAERS Safety Report 12783288 (Version 3)
Quarter: 2020Q3

REPORT INFORMATION
  Report Type: Report from Study
  Country: BR (occurrence: BR)
  Receive Date: 20160927
  Receipt Date: 20161024
  Transmission Date: 20201104
  Serious: Yes (Other)
  Sender: FDA-Public Use
  Company Number: BR-ROCHE-1810984

PATIENT
  Age: 38 Year
  Sex: Male
  Weight: 84.7 kg

DRUGS (3)
  1. ALECTINIB. [Suspect]
     Active Substance: ALECTINIB
     Indication: LUNG NEOPLASM MALIGNANT
     Route: 048
     Dates: start: 20160302
  2. TYLEX (BRAZIL) [Concomitant]
     Active Substance: ACETAMINOPHEN\CODEINE PHOSPHATE
     Route: 048
     Dates: start: 20160801, end: 20160808
  3. DIMORF [Concomitant]
     Active Substance: MORPHINE SULFATE
     Route: 048
     Dates: start: 20160808

REACTIONS (1)
  - Metastasis [Unknown]
